FAERS Safety Report 19140838 (Version 2)
Quarter: 2022Q4

REPORT INFORMATION
  Report Type: Report from Study
  Country: ES (occurrence: ES)
  Receive Date: 20210415
  Receipt Date: 20221212
  Transmission Date: 20230113
  Serious: Yes (Death)
  Sender: FDA-Public Use
  Company Number: None

PATIENT
  Age: 73 Year
  Sex: Male

DRUGS (2)
  1. ETANERCEPT [Suspect]
     Active Substance: ETANERCEPT
     Indication: Ankylosing spondylitis
     Dosage: FOUR PRE-FILLED SYRINGES
     Route: 058
     Dates: start: 20190328
  2. ETANERCEPT [Suspect]
     Active Substance: ETANERCEPT
     Dosage: 50 MG/FOUR WEEKS, FOUR PRE-FILLED SYRINGES
     Route: 058

REACTIONS (4)
  - Acute kidney injury [Fatal]
  - Encephalopathy [Fatal]
  - Urinary tract infection [Fatal]
  - Product use issue [Unknown]

NARRATIVE: CASE EVENT DATE: 20210106
